FAERS Safety Report 4576441-9 (Version None)
Quarter: 2005Q1

REPORT INFORMATION
  Report Type: 
  Country: None (occurrence: None)
  Receive Date: 20050209
  Receipt Date: 20041112
  Transmission Date: 20050727
  Serious: Yes (Other)
  Sender: FDA-Public Use
  Company Number: JP-MERCK-0412USA01476

PATIENT
  Age: 76 Year
  Sex: Female
  Weight: 43 kg

DRUGS (3)
  1. SINGULAIR [Suspect]
     Indication: ASTHMA
     Route: 048
     Dates: start: 20041029, end: 20041101
  2. SINGULAIR [Suspect]
     Route: 048
     Dates: start: 20041015, end: 20041001
  3. ERYTHROMYCIN ETHYLSUCCINATE [Suspect]
     Indication: BRONCHIECTASIS
     Route: 048
     Dates: start: 20020620, end: 20041112

REACTIONS (2)
  - ATRIAL FIBRILLATION [None]
  - SUPRAVENTRICULAR EXTRASYSTOLES [None]
